FAERS Safety Report 5762054-X (Version None)
Quarter: 2008Q2

REPORT INFORMATION
  Report Type: 
  Country: None (occurrence: None)
  Receive Date: 20080604
  Receipt Date: 20080526
  Transmission Date: 20081010
  Serious: Yes (Life-Threatening, Other)
  Sender: FDA-Public Use
  Company Number: GXKR2008GB04768

PATIENT
  Age: 69 Year
  Sex: Male
  Weight: 68 kg

DRUGS (7)
  1. AMLODIPINE [Suspect]
     Indication: HYPERTENSION
     Dosage: 5 MG, QD, ORAL
     Route: 048
     Dates: end: 20060525
  2. CETIRIZINE HCL [Suspect]
     Indication: PRURITUS
     Dosage: 10 MG, QD, ORAL
     Route: 048
     Dates: start: 20060523
  3. AMBISOME [Suspect]
     Indication: SYSTEMIC CANDIDA
     Dosage: 1 MG/KG, INTRAVENOUS, 3 MG/KG, INTRAVENOUS
     Route: 042
     Dates: start: 20060519, end: 20060602
  4. CALCICHEW (CALCIUM CARBONATE) [Concomitant]
  5. DARBEPOETIN ALFA (DARBEPOETIN ALFA) [Concomitant]
  6. OMEPRAZOLE [Concomitant]
  7. SODIUM BICARBONATE IN PLASTIC CONTAINER [Concomitant]

REACTIONS (6)
  - ARRHYTHMIA SUPRAVENTRICULAR [None]
  - ATRIAL FLUTTER [None]
  - BLOOD PRESSURE DECREASED [None]
  - HAEMOGLOBIN DECREASED [None]
  - HEART RATE INCREASED [None]
  - HYPOMAGNESAEMIA [None]
